FAERS Safety Report 9916102 (Version 1)
Quarter: 2014Q1

REPORT INFORMATION
  Report Type: Spontaneous
  Country: US (occurrence: None)
  Receive Date: 20140219
  Receipt Date: 20140219
  Transmission Date: 20141002
  Serious: Yes (Death)
  Sender: FDA-Public Use
  Company Number: 2014P1001144

PATIENT
  Age: 2 Year
  Sex: Male

DRUGS (1)
  1. FENTANYL [Suspect]
     Route: 048

REACTIONS (4)
  - Accidental exposure to product by child [None]
  - Unresponsive to stimuli [None]
  - Incorrect route of drug administration [None]
  - Incorrect dose administered [None]
